FAERS Safety Report 18074707 (Version 1)
Quarter: 2020Q3

REPORT INFORMATION
  Report Type: Spontaneous
  Country: US (occurrence: US)
  Receive Date: 20200727
  Receipt Date: 20200727
  Transmission Date: 20201103
  Serious: No
  Sender: FDA-Public Use
  Company Number: US-ABBVIE-19K-163-2889894-00

PATIENT
  Age: 65 Year
  Sex: Female

DRUGS (2)
  1. SYNTHROID [Suspect]
     Active Substance: LEVOTHYROXINE SODIUM
     Indication: HYPOTHYROIDISM
     Dosage: ONE TABLET EVERY OTHER DAY ALTERNATING WITH  SYNTHROID 75 MCG
     Route: 048
  2. SYNTHROID [Suspect]
     Active Substance: LEVOTHYROXINE SODIUM
     Indication: HYPOTHYROIDISM
     Dosage: 1 TABLET EVERY OTHER DAY ALTERNATING WITH SYNTHROID  50 MCG
     Route: 046

REACTIONS (4)
  - Allergy to chemicals [Unknown]
  - Food allergy [Unknown]
  - Arthritis [Not Recovered/Not Resolved]
  - Blood immunoglobulin A increased [Unknown]

NARRATIVE: CASE EVENT DATE: 201711
